FAERS Safety Report 23590362 (Version 1)
Quarter: 2024Q1

REPORT INFORMATION
  Report Type: Report from Study
  Country: US (occurrence: US)
  Receive Date: 20240304
  Receipt Date: 20240304
  Transmission Date: 20240410
  Serious: Yes (Other)
  Sender: FDA-Public Use
  Company Number: US-ABBVIE-5660982

PATIENT

DRUGS (1)
  1. HUMIRA [Suspect]
     Active Substance: ADALIMUMAB
     Indication: Rheumatoid arthritis
     Dosage: FORM STRENGTH: 40 MILLIGRAM?CITRATE FREE
     Route: 058

REACTIONS (4)
  - Pulmonary thrombosis [Not Recovered/Not Resolved]
  - Pneumonia [Not Recovered/Not Resolved]
  - Aortic aneurysm [Not Recovered/Not Resolved]
  - Arteriosclerosis coronary artery [Unknown]
